FAERS Safety Report 10267264 (Version 1)
Quarter: 2014Q2

REPORT INFORMATION
  Report Type: Spontaneous
  Country: US (occurrence: None)
  Receive Date: 20140625
  Receipt Date: 20140625
  Transmission Date: 20141212
  Serious: Yes (Other)
  Sender: FDA-Public Use
  Company Number: US-H14001-14-00079

PATIENT
  Age: 37 Year
  Sex: Female

DRUGS (2)
  1. PROTAMINE SULFATE (PROTAMINE SULFATE) (UNKNOWN) (PROTAMINE SULFATE) [Suspect]
     Indication: PRODUCT USED FOR UNKNOWN INDICATION
  2. CATECHOLAMINES (UNKNOWN) [Suspect]
     Indication: PRODUCT USED FOR UNKNOWN INDICATION

REACTIONS (2)
  - Stress cardiomyopathy [None]
  - Kounis syndrome [None]
